FAERS Safety Report 6283290 (Version 4)
Quarter: 2018Q4

REPORT INFORMATION
  Report Type: Spontaneous
  Country: JP (occurrence: JP)
  Receive Date: 20070409
  Receipt Date: 20181129
  Transmission Date: 20190205
  Serious: Yes (Other)
  Sender: FDA-Public Use
  Company Number: PHBS2007JP05648

PATIENT
  Age: 27 Year
  Sex: Female

DRUGS (3)
  1. GLIVEC [Suspect]
     Active Substance: IMATINIB MESYLATE
     Indication: CHRONIC MYELOID LEUKAEMIA
     Dosage: UNK
     Route: 065
     Dates: start: 200505, end: 200602
  2. CICLOSPORIN [Interacting]
     Active Substance: CYCLOSPORINE
     Indication: PROPHYLAXIS AGAINST GRAFT VERSUS HOST DISEASE
     Dosage: UNK
     Route: 065
  3. GLIVEC [Interacting]
     Active Substance: IMATINIB MESYLATE
     Dosage: 400 MG, QD
     Route: 065
     Dates: start: 200505, end: 200602

REACTIONS (7)
  - Graft versus host disease [Unknown]
  - Nausea [Recovered/Resolved]
  - Liver disorder [Recovered/Resolved]
  - Vomiting [Recovered/Resolved]
  - Tremor [Unknown]
  - Leukopenia [Recovered/Resolved]
  - Drug level increased [Unknown]

NARRATIVE: CASE EVENT DATE: 2005
